FAERS Safety Report 4778974-9 (Version None)
Quarter: 2005Q3

REPORT INFORMATION
  Report Type: 
  Country: None (occurrence: None)
  Receive Date: 20050922
  Receipt Date: 20050909
  Transmission Date: 20060218
  Serious: Yes (Other)
  Sender: FDA-Public Use
  Company Number: GBWYE994320SEP05

PATIENT
  Age: 68 Year
  Sex: 0

DRUGS (1)
  1. MINOCIN [Suspect]

REACTIONS (5)
  - CIRCULATORY COLLAPSE [None]
  - LETHARGY [None]
  - NAUSEA [None]
  - PYREXIA [None]
  - SYNCOPE [None]
